FAERS Safety Report 5021921-5 (Version None)
Quarter: 2006Q2

REPORT INFORMATION
  Report Type: 
  Country: None (occurrence: None)
  Receive Date: 20060605
  Receipt Date: 20060515
  Transmission Date: 20061013
  Serious: Yes (Hospitalization)
  Sender: FDA-Public Use
  Company Number: US200605003237

PATIENT
  Sex: Female

DRUGS (7)
  1. HUMALOG PEN [Suspect]
     Dosage: 3/D, PER SLIDING SCALE,
     Dates: start: 20030101
  2. HUMULIN 70/30 [Concomitant]
     Dates: start: 19970101, end: 20030101
  3. TRAVATAN [Concomitant]
  4. ALPHAGAN (BRIMONIDINE TARTRATE) EYE DROPS [Concomitant]
  5. NEXIUM [Concomitant]
  6. LASIX [Concomitant]
  7. LANTUS [Concomitant]

REACTIONS (8)
  - CEREBROVASCULAR ACCIDENT [None]
  - HEMIPARESIS [None]
  - IDIOPATHIC THROMBOCYTOPENIC PURPURA [None]
  - INJECTION SITE BRUISING [None]
  - INJECTION SITE PAIN [None]
  - MEMORY IMPAIRMENT [None]
  - PAIN IN EXTREMITY [None]
  - PHARMACEUTICAL PRODUCT COMPLAINT [None]
